FAERS Safety Report 5367398-1 (Version None)
Quarter: 2007Q2

REPORT INFORMATION
  Report Type: 
  Country: None (occurrence: None)
  Receive Date: 20070619
  Receipt Date: 20070604
  Transmission Date: 20071010
  Serious: Yes (Hospitalization)
  Sender: FDA-Public Use
  Company Number: T200700653

PATIENT
  Age: 50 Year
  Sex: Female

DRUGS (3)
  1. OPTIRAY  320     (IOVERSOL) [Suspect]
     Indication: COMPUTERISED TOMOGRAM
     Dosage: 100 ML, SNGLE, INTRAVENOUS
     Route: 042
     Dates: start: 20070604, end: 20070604
  2. OPTIRAY  320     (IOVERSOL) [Suspect]
     Indication: COMPUTERISED TOMOGRAM ABDOMEN
     Dosage: 100 ML, SNGLE, INTRAVENOUS
     Route: 042
     Dates: start: 20070604, end: 20070604
  3. OPTIRAY  320     (IOVERSOL) [Suspect]
     Indication: COMPUTERISED TOMOGRAM THORAX
     Dosage: 100 ML, SNGLE, INTRAVENOUS
     Route: 042
     Dates: start: 20070604, end: 20070604

REACTIONS (6)
  - ANAPHYLACTIC REACTION [None]
  - HYPERVENTILATION [None]
  - LACRIMATION INCREASED [None]
  - LARYNGEAL OEDEMA [None]
  - MUSCULOSKELETAL STIFFNESS [None]
  - NASAL DISCOMFORT [None]
